FAERS Safety Report 10172400 (Version 1)
Quarter: 2014Q2

REPORT INFORMATION
  Report Type: Spontaneous
  Country: US (occurrence: US)
  Receive Date: 20140515
  Receipt Date: 20140515
  Transmission Date: 20141212
  Serious: Yes (Hospitalization, Other)
  Sender: FDA-Public Use
  Company Number: US-ASTRAZENECA-2014SE31420

PATIENT
  Age: 79 Year
  Sex: Female

DRUGS (2)
  1. CRESTOR [Suspect]
     Indication: HYPERLIPIDAEMIA
     Route: 048
     Dates: start: 2009
  2. OTHERS-UNSPECIFIED [Concomitant]
     Dosage: UNKNOWN UNK

REACTIONS (4)
  - Cerebrovascular accident [Unknown]
  - Rhabdomyolysis [Unknown]
  - Hypertension [Unknown]
  - Diabetes mellitus [Unknown]
